FAERS Safety Report 8972555 (Version 2)
Quarter: 2013Q1

REPORT INFORMATION
  Report Type: Spontaneous
  Country: US (occurrence: US)
  Receive Date: 20121219
  Receipt Date: 20130109
  Transmission Date: 20140127
  Serious: No
  Sender: FDA-Public Use
  Company Number: US-ROXANE LABORATORIES, INC.-2012-RO-02545RO

PATIENT
  Sex: Male

DRUGS (3)
  1. MORPHINE [Suspect]
     Indication: BACK PAIN
     Route: 048
     Dates: start: 20121121, end: 20121126
  2. TEMAZEPAM [Concomitant]
  3. FLEXERIL [Concomitant]

REACTIONS (7)
  - Nausea [Recovered/Resolved]
  - Vomiting [Recovered/Resolved]
  - Abdominal discomfort [Recovered/Resolved]
  - Drug ineffective [Recovered/Resolved]
  - Dizziness [Not Recovered/Not Resolved]
  - Dysphemia [Not Recovered/Not Resolved]
  - Product quality issue [Unknown]
